FAERS Safety Report 8804567 (Version 1)
Quarter: 2012Q4

REPORT INFORMATION
  Report Type: 
  Country: US (occurrence: US)
  Receive Date: 20120924
  Receipt Date: 20120924
  Transmission Date: 20130627
  Serious: No
  Sender: FDA-Public Use
  Company Number: US-ENDO PHARMACEUTICALS INC.-SOTA20120008

PATIENT
  Sex: Male
  Weight: 81.72 kg

DRUGS (2)
  1. SOTALOL HYDROCHLORIDE [Suspect]
     Indication: ATRIAL FIBRILLATION
     Route: 048
     Dates: end: 201205
  2. SOTALOL HYDROCHLORIDE [Suspect]
     Route: 048
     Dates: start: 2012

REACTIONS (2)
  - Atrial fibrillation [Recovered/Resolved]
  - Therapy cessation [Recovered/Resolved]
